FAERS Safety Report 21501622 (Version 1)
Quarter: 2022Q4

REPORT INFORMATION
  Report Type: Spontaneous
  Country: US (occurrence: None)
  Receive Date: 20221024
  Receipt Date: 20221024
  Transmission Date: 20230112
  Serious: No
  Sender: FDA-Public Use
  Company Number: None

PATIENT
  Age: 70 Year
  Sex: Female
  Weight: 68.95 kg

DRUGS (17)
  1. EVEROLIMUS [Suspect]
     Active Substance: EVEROLIMUS
     Indication: Malignant nipple neoplasm female
     Dosage: FREQUENCY : DAILY;?
     Route: 048
  2. ALIGN [Concomitant]
     Active Substance: BIFIDOBACTERIUM LONGUM SUBSP. INFANTIS
  3. AZO URINARY TRACT DEFENSE [Concomitant]
  4. BIOTIN [Concomitant]
     Active Substance: BIOTIN
  5. Calcium-Magnesium-Zinc [Concomitant]
  6. Daily Multiple Women [Concomitant]
  7. LYSINE [Concomitant]
     Active Substance: LYSINE
  8. VITAMIN C [Concomitant]
     Active Substance: ASCORBIC ACID
  9. FUROSEMIDE [Concomitant]
     Active Substance: FUROSEMIDE
  10. GARLIC OIL [Concomitant]
     Active Substance: GARLIC OIL
  11. MELOXICAM [Concomitant]
     Active Substance: MELOXICAM
  12. OMEGA 3 [Concomitant]
     Active Substance: CAPSAICIN
  13. PAXLOVID [Concomitant]
     Active Substance: NIRMATRELVIR\RITONAVIR
  14. PEPCID [Concomitant]
     Active Substance: FAMOTIDINE
  15. PRILOSEC [Concomitant]
     Active Substance: OMEPRAZOLE MAGNESIUM
  16. SIMVASTATIN [Concomitant]
     Active Substance: SIMVASTATIN
  17. VITAMIN D [Concomitant]
     Active Substance: VITAMIN D NOS

REACTIONS (4)
  - SARS-CoV-2 test positive [None]
  - Asthenia [None]
  - Cough [None]
  - Exposure to SARS-CoV-2 [None]
